FAERS Safety Report 4348367-7 (Version None)
Quarter: 2004Q2

REPORT INFORMATION
  Report Type: 
  Country: None (occurrence: None)
  Receive Date: 20040427
  Receipt Date: 20040405
  Transmission Date: 20050107
  Serious: Yes (Other)
  Sender: FDA-Public Use
  Company Number: PHNR2004AU00849

PATIENT
  Sex: Female

DRUGS (7)
  1. LOPRESSOR [Suspect]
     Indication: HYPERTENSION
     Dosage: 100 MG, QD
     Route: 048
     Dates: start: 19790101, end: 20040329
  2. LOPRESSOR [Suspect]
     Dosage: 100 MG, QD
     Route: 048
     Dates: start: 20040331
  3. LOPRESSOR [Suspect]
     Dosage: 50 MG, QD
     Route: 048
  4. RENITEC [Suspect]
     Indication: HYPERTENSION
     Dosage: 10 MG, MANE
     Route: 048
     Dates: start: 20040330, end: 20040401
  5. HYDRENE [Suspect]
     Dosage: 1 TABLET MANE
     Route: 048
  6. THYROXINE [Concomitant]
     Dosage: 75 UG, QD
     Route: 048
  7. DIAFORMIN [Concomitant]
     Dosage: 250 MG, TID
     Route: 048

REACTIONS (4)
  - DIZZINESS [None]
  - FATIGUE [None]
  - HYPOTENSION [None]
  - LOSS OF CONSCIOUSNESS [None]
